FAERS Safety Report 7984138-8 (Version None)
Quarter: 2011Q4

REPORT INFORMATION
  Report Type: 
  Country: None (occurrence: None)
  Receive Date: 20111216
  Receipt Date: 20111202
  Transmission Date: 20120403
  Serious: Yes (Hospitalization, Disabling, Other)
  Sender: FDA-Public Use
  Company Number: FR-PFIZER INC-K201001543

PATIENT
  Age: 50 Year
  Sex: Female

DRUGS (5)
  1. CALCIUM [Concomitant]
  2. PANTOPRAZOLE SODIUM [Concomitant]
  3. BUDESONIDE W/FORMOTEROL FUMARATE [Concomitant]
     Dosage: 160 MG, BID, QAM
  4. RAMIPRIL [Suspect]
     Dosage: UNK
     Route: 048
     Dates: start: 20100901, end: 20101207
  5. VITAMIN D [Concomitant]

REACTIONS (18)
  - ASTHMA [None]
  - BRONCHIAL OBSTRUCTION [None]
  - OROPHARYNGEAL PAIN [None]
  - RESPIRATORY ARREST [None]
  - RESPIRATORY DISORDER [None]
  - PULMONARY FUNCTION TEST DECREASED [None]
  - SWELLING FACE [None]
  - THROAT IRRITATION [None]
  - COUGH [None]
  - DYSPNOEA [None]
  - BRONCHOSPASM [None]
  - ADVERSE EVENT [None]
  - VIRAL INFECTION [None]
  - OEDEMA PERIPHERAL [None]
  - GENERAL PHYSICAL HEALTH DETERIORATION [None]
  - ANGIOEDEMA [None]
  - SUFFOCATION FEELING [None]
  - SENSATION OF FOREIGN BODY [None]
